FAERS Safety Report 8513455 (Version 3)
Quarter: 2012Q4

REPORT INFORMATION
  Report Type: 
  Country: US (occurrence: US)
  Receive Date: 20120416
  Receipt Date: 20121107
  Transmission Date: 20130627
  Serious: Yes (Other)
  Sender: FDA-Public Use
  Company Number: US-PFIZER INC-2012089350

PATIENT
  Age: 67 Year
  Sex: Female
  Weight: 72.56 kg

DRUGS (7)
  1. XALATAN [Suspect]
     Indication: INTRAOCULAR PRESSURE HIGH
     Dosage: 1 Gtt, daily, both eyes
     Route: 047
     Dates: end: 2011
  2. XALATAN [Suspect]
     Indication: GLAUCOMA
  3. LOSARTAN [Concomitant]
     Indication: BLOOD PRESSURE HIGH
     Dosage: 100 mg, daily
  4. LEVOXYL [Concomitant]
     Indication: THYROIDECTOMY
     Dosage: 100 mcg, daily
  5. SIMVASTATIN [Concomitant]
     Indication: HIGH CHOLESTEROL
     Dosage: 20 mg, daily
  6. ASPIRIN [Concomitant]
     Indication: ANTIPLATELET THERAPY
     Dosage: 50 mg, daily
  7. DORZOLAMIDE HYDROCHLORIDE/TIMOLOL MALEATE [Concomitant]
     Dosage: UNK

REACTIONS (1)
  - Malignant melanoma [Recovered/Resolved]
